FAERS Safety Report 9948157 (Version 1)
Quarter: 2014Q1

REPORT INFORMATION
  Report Type: Report from Study
  Country: US (occurrence: US)
  Receive Date: 20140303
  Receipt Date: 20140303
  Transmission Date: 20141002
  Serious: No
  Sender: FDA-Public Use
  Company Number: US-ABBVIE-13P-163-1059199-00

PATIENT
  Age: 18 Year
  Sex: Female
  Weight: 49.94 kg

DRUGS (4)
  1. HUMIRA [Suspect]
     Indication: COLITIS ULCERATIVE
     Route: 058
     Dates: start: 20130304, end: 20130304
  2. REGLAN [Concomitant]
     Indication: GASTROINTESTINAL MOTILITY DISORDER
  3. CORTISONE [Concomitant]
     Indication: COLITIS ULCERATIVE
  4. BUDESONIDE [Concomitant]
     Indication: COLITIS ULCERATIVE

REACTIONS (2)
  - Injection site pain [Recovered/Resolved]
  - Injection site haemorrhage [Recovered/Resolved]
